FAERS Safety Report 21444983 (Version 1)
Quarter: 2022Q4

REPORT INFORMATION
  Report Type: Spontaneous
  Country: US (occurrence: None)
  Receive Date: 20221010
  Receipt Date: 20221010
  Transmission Date: 20230112
  Serious: Yes (Hospitalization)
  Sender: FDA-Public Use
  Company Number: None

PATIENT
  Sex: Female
  Weight: 57.61 kg

DRUGS (7)
  1. PROMACTA [Suspect]
     Active Substance: ELTROMBOPAG OLAMINE
     Indication: Chronic lymphocytic leukaemia
     Dosage: FREQUENCY : DAILY;?
     Route: 048
  2. CALQUENCE [Concomitant]
     Active Substance: ACALABRUTINIB
  3. MIRALAX [Concomitant]
     Active Substance: POLYETHYLENE GLYCOL 3350
  4. ZARXIO [Concomitant]
     Active Substance: FILGRASTIM-SNDZ
  5. PEPCID [Concomitant]
     Active Substance: FAMOTIDINE
  6. CYCLOSPORINE [Concomitant]
     Active Substance: CYCLOSPORINE
  7. ONDANSETRON [Concomitant]
     Active Substance: ONDANSETRON

REACTIONS (5)
  - Platelet count decreased [None]
  - Asymptomatic COVID-19 [None]
  - SARS-CoV-2 test false positive [None]
  - Therapy interrupted [None]
  - Rash erythematous [None]
